FAERS Safety Report 5012692-7 (Version None)
Quarter: 2006Q2

REPORT INFORMATION
  Report Type: 
  Country: None (occurrence: None)
  Receive Date: 20060524
  Receipt Date: 20060511
  Transmission Date: 20061013
  Serious: Yes (Hospitalization)
  Sender: FDA-Public Use
  Company Number: 2006063347

PATIENT
  Age: 12 Year

DRUGS (1)
  1. SULPERAZON (SULBACTAM, CEFOPERAZONE) [Suspect]
     Indication: APPENDICECTOMY
     Dosage: 3 GRAM (1.5 GRAM, 2 IN 1D),  INTRAVENOUS
     Route: 042

REACTIONS (1)
  - INCISION SITE HAEMORRHAGE [None]
